FAERS Safety Report 10056271 (Version 1)
Quarter: 2014Q2

REPORT INFORMATION
  Report Type: Spontaneous
  Country: US (occurrence: None)
  Receive Date: 20140401
  Receipt Date: 20140401
  Transmission Date: 20141212
  Serious: Yes (Other)
  Sender: FDA-Public Use
  Company Number: 2262058

PATIENT
  Age: 62 Year
  Sex: Female

DRUGS (2)
  1. BLEOMYCIN SULPHATE [Suspect]
     Indication: CHEMOTHERAPY
  2. INVESTIGATIONAL DRUG [Suspect]
     Indication: PROPHYLAXIS OF NAUSEA AND VOMITING

REACTIONS (1)
  - Pneumonia [None]
